FAERS Safety Report 8460513 (Version 2)
Quarter: 2013Q1

REPORT INFORMATION
  Report Type: Spontaneous
  Country: US (occurrence: US)
  Receive Date: 20120315
  Receipt Date: 20130108
  Transmission Date: 20140127
  Serious: Yes (Congenital Anomaly, Other)
  Sender: FDA-Public Use
  Company Number: US-PFIZER INC-2012065866

PATIENT
  Age: 7 Week
  Sex: Male

DRUGS (3)
  1. ZOLOFT [Suspect]
     Indication: ANXIETY
     Dosage: UNK
     Route: 064
  2. ZOLOFT [Suspect]
     Indication: DEPRESSION
  3. ZOLOFT [Suspect]
     Indication: AFFECTIVE DISORDER

REACTIONS (6)
  - Maternal exposure timing unspecified [Unknown]
  - Transposition of the great vessels [Unknown]
  - Patent ductus arteriosus [Unknown]
  - Pulmonary artery stenosis [Unknown]
  - Hypospadias [Unknown]
  - Atrial septal defect [Unknown]
